FAERS Safety Report 5138778-4 (Version None)
Quarter: 2006Q4

REPORT INFORMATION
  Report Type: 
  Country: None (occurrence: None)
  Receive Date: 20061024
  Receipt Date: 20061017
  Transmission Date: 20070319
  Serious: Yes (Hospitalization)
  Sender: FDA-Public Use
  Company Number: 148865USA

PATIENT
  Age: 51 Year
  Sex: Female
  Weight: 63.05 kg

DRUGS (9)
  1. FLUOROURACIL [Suspect]
     Dosage: 3024 MG EVERY OTHER WEEK, INTRAVENOUS (NOT OTHERWISE SPECIFIED)
     Dates: start: 20060530, end: 20060920
  2. AG-013, 736 (AG-013, 736) [Suspect]
     Indication: COLORECTAL CANCER
     Dosage: 10 MG (5 MG, 2 IN 1 D) ORAL
     Route: 048
     Dates: start: 20060531, end: 20060928
  3. OXALIPLATIN [Suspect]
     Dosage: 142.8 MG EVERY OTHER WEEK , INTRAVENOUS (NOT OTHERWISE SPECIFIED)
     Dates: start: 20060530, end: 20060918
  4. BEVACIZUMAB [Suspect]
     Dosage: 50.4 MG EVERY OTHER WEEK, INTRAVENOUS (NOT OTHERWISE SPECIFIED)
     Dates: start: 20060503, end: 20060918
  5. LISINOPRIL [Concomitant]
  6. METFORMIN [Concomitant]
  7. PANTOPRAZOLE SODIUM [Concomitant]
  8. ACETYLSALICYLIC ACID SRT [Concomitant]
  9. AMLODIPINE [Concomitant]

REACTIONS (19)
  - ACIDOSIS [None]
  - ALANINE AMINOTRANSFERASE INCREASED [None]
  - ASPARTATE AMINOTRANSFERASE INCREASED [None]
  - ATELECTASIS [None]
  - BILIRUBIN CONJUGATED INCREASED [None]
  - BLOOD ALBUMIN DECREASED [None]
  - BLOOD ALKALINE PHOSPHATASE INCREASED [None]
  - BLOOD BILIRUBIN INCREASED [None]
  - BLOOD BILIRUBIN UNCONJUGATED INCREASED [None]
  - BLOOD GLUCOSE INCREASED [None]
  - BRAIN NATRIURETIC PEPTIDE INCREASED [None]
  - LUNG INFILTRATION [None]
  - PLATELET COUNT DECREASED [None]
  - PLEURAL EFFUSION [None]
  - PROTEIN TOTAL DECREASED [None]
  - PULMONARY MASS [None]
  - PULMONARY OEDEMA [None]
  - RESPIRATORY FAILURE [None]
  - WHITE BLOOD CELL COUNT INCREASED [None]
